FAERS Safety Report 10255797 (Version 2)
Quarter: 2014Q3

REPORT INFORMATION
  Report Type: Spontaneous
  Country: US (occurrence: US)
  Receive Date: 20140624
  Receipt Date: 20140725
  Transmission Date: 20150326
  Serious: Yes (Other)
  Sender: FDA-Public Use
  Company Number: US-JNJFOC-20140612051

PATIENT
  Age: 65 Year
  Sex: Male

DRUGS (8)
  1. METHOTREXATE [Suspect]
     Active Substance: METHOTREXATE
     Indication: UVEITIS
     Route: 065
  2. INFLIXIMAB, RECOMBINANT [Suspect]
     Active Substance: INFLIXIMAB
     Indication: UVEITIS
     Route: 042
  3. METHOTREXATE [Suspect]
     Active Substance: METHOTREXATE
     Indication: VOGT-KOYANAGI-HARADA SYNDROME
     Route: 065
  4. PREDNISONE. [Suspect]
     Active Substance: PREDNISONE
     Indication: VOGT-KOYANAGI-HARADA SYNDROME
     Dosage: LOW DOSE
     Route: 048
  5. CORTICOSTEROIDS [Concomitant]
     Active Substance: CORTICOSTEROID NOS
     Indication: UVEITIS
     Route: 065
  6. INFLIXIMAB, RECOMBINANT [Suspect]
     Active Substance: INFLIXIMAB
     Indication: VOGT-KOYANAGI-HARADA SYNDROME
     Route: 042
  7. PREDNISONE. [Suspect]
     Active Substance: PREDNISONE
     Indication: VOGT-KOYANAGI-HARADA SYNDROME
     Route: 048
  8. TRIAMCINOLONE ACETONIDE. [Suspect]
     Active Substance: TRIAMCINOLONE ACETONIDE
     Indication: VOGT-KOYANAGI-HARADA SYNDROME
     Route: 050

REACTIONS (2)
  - Off label use [Unknown]
  - Cytomegalovirus chorioretinitis [Recovered/Resolved]
